FAERS Safety Report 26144794 (Version 1)
Quarter: 2025Q4

REPORT INFORMATION
  Report Type: Spontaneous
  Country: US (occurrence: None)
  Receive Date: 20251210
  Receipt Date: 20251210
  Transmission Date: 20260118
  Serious: Yes (Other)
  Sender: FDA-CTU
  Company Number: None

PATIENT
  Age: 32 Year
  Sex: Female

DRUGS (1)
  1. OCTREOTIDE [Suspect]
     Active Substance: OCTREOTIDE
     Indication: Short-bowel syndrome
     Dosage: 0.12 ML OF CONCENTRATION 1000MCG/ML 4 TIMES DAILY

REACTIONS (2)
  - Product preparation error [None]
  - Accidental underdose [None]
